FAERS Safety Report 10166268 (Version 1)
Quarter: 2014Q2

REPORT INFORMATION
  Report Type: Spontaneous
  Country: GB (occurrence: GB)
  Receive Date: 20140512
  Receipt Date: 20140512
  Transmission Date: 20141212
  Serious: Yes (Other)
  Sender: FDA-Public Use
  Company Number: GB-JNJFOC-20140503424

PATIENT
  Age: 51 Year
  Sex: 0
  Weight: 76 kg

DRUGS (5)
  1. REMICADE [Suspect]
     Indication: CROHN^S DISEASE
     Dosage: 380 (UNITS UNSPECIFIED)
     Route: 042
  2. PARACETAMOL [Concomitant]
     Route: 065
  3. CHOLESTYRAMINE [Concomitant]
     Route: 065
  4. ESOMEPRAZOLE [Concomitant]
     Route: 065
  5. AMITRIPTYLINE [Concomitant]
     Route: 065

REACTIONS (6)
  - Blister [Recovered/Resolved]
  - Hypertension [Recovered/Resolved]
  - Pruritus [Recovered/Resolved]
  - Flushing [Recovered/Resolved]
  - Rash pruritic [Recovered/Resolved]
  - Infusion related reaction [Recovered/Resolved]
